FAERS Safety Report 5004302-X (Version None)
Quarter: 2006Q2

REPORT INFORMATION
  Report Type: 
  Country: None (occurrence: None)
  Receive Date: 20060517
  Receipt Date: 20060227
  Transmission Date: 20061013
  Serious: Yes (Death, Hospitalization)
  Sender: FDA-Public Use
  Company Number: US-MERCK-0603USA00246

PATIENT
  Age: 56 Year
  Sex: Male
  Weight: 86 kg

DRUGS (8)
  1. VIOXX [Suspect]
     Indication: PAIN
     Route: 048
     Dates: start: 20010101, end: 20040208
  2. ADVIL [Concomitant]
     Indication: PAIN
     Route: 065
     Dates: end: 20040201
  3. NEXIUM [Concomitant]
     Indication: DYSPEPSIA
     Route: 065
  4. PRILOSEC [Concomitant]
     Indication: DYSPEPSIA
     Route: 065
  5. KENALOG [Concomitant]
     Route: 065
  6. PREDNISONE [Concomitant]
     Indication: PAIN
     Route: 065
     Dates: start: 20010401, end: 20010501
  7. DOXYCYCLINE [Concomitant]
     Route: 065
  8. CELEBREX [Suspect]
     Indication: PAIN
     Route: 065
     Dates: start: 20000101, end: 20020101

REACTIONS (5)
  - CORONARY ARTERY OCCLUSION [None]
  - HAEMATEMESIS [None]
  - HYPERTENSION [None]
  - MYOCARDIAL INFARCTION [None]
  - MYOCARDIAL RUPTURE [None]
